FAERS Safety Report 7497016-8 (Version None)
Quarter: 2011Q2

REPORT INFORMATION
  Report Type: 
  Country: None (occurrence: None)
  Receive Date: 20110523
  Receipt Date: 20110511
  Transmission Date: 20111010
  Serious: Yes (Other)
  Sender: FDA-Public Use
  Company Number: JP-CELGENEUS-087-50794-11052658

PATIENT

DRUGS (1)
  1. VIDAZA [Suspect]
     Dosage: 100 MILLIGRAM
     Route: 051

REACTIONS (1)
  - DISSEMINATED INTRAVASCULAR COAGULATION [None]
